FAERS Safety Report 8232588-7 (Version None)
Quarter: 2012Q1

REPORT INFORMATION
  Report Type: 
  Country: None (occurrence: None)
  Receive Date: 20120323
  Receipt Date: 20120321
  Transmission Date: 20120608
  Serious: Yes (Death)
  Sender: FDA-Public Use
  Company Number: FR-B.I. PHARMACEUTICALS,INC./RIDGEFIELD-2012-FF-00334FF

PATIENT
  Age: 74 Year
  Sex: Female

DRUGS (5)
  1. PRADAXA [Suspect]
     Dosage: 300 MG
     Dates: start: 20120124, end: 20120124
  2. LOVENOX [Suspect]
     Dosage: 14000 U
     Route: 058
     Dates: start: 20120125, end: 20120206
  3. PRADAXA [Suspect]
     Dosage: 150 MG
     Dates: start: 20120125, end: 20120125
  4. ASPIRIN [Suspect]
     Dosage: 75 MG
     Route: 048
     Dates: start: 20120114, end: 20120206
  5. PRADAXA [Suspect]
     Dosage: 150 MG
     Dates: start: 20120123, end: 20120123

REACTIONS (1)
  - HAEMORRHAGIC STROKE [None]
